FAERS Safety Report 25945612 (Version 2)
Quarter: 2025Q4

REPORT INFORMATION
  Report Type: Spontaneous
  Country: EU (occurrence: EU)
  Receive Date: 20251021
  Receipt Date: 20251210
  Transmission Date: 20260117
  Serious: No
  Sender: PFIZER
  Company Number: EU-PFIZER INC-202500208362

PATIENT

DRUGS (1)
  1. MEDROXYPROGESTERONE [Suspect]
     Active Substance: MEDROXYPROGESTERONE
     Indication: Contraception
     Dosage: UNK

REACTIONS (1)
  - Device breakage [Unknown]
